FAERS Safety Report 25191206 (Version 1)
Quarter: 2025Q2

REPORT INFORMATION
  Report Type: Spontaneous
  Country: US (occurrence: US)
  Receive Date: 20250411
  Receipt Date: 20250411
  Transmission Date: 20250717
  Serious: Yes (Death, Other)
  Sender: AMGEN
  Company Number: US-AMGEN-USASP2025066784

PATIENT

DRUGS (4)
  1. ETANERCEPT [Suspect]
     Active Substance: ETANERCEPT
     Indication: Product used for unknown indication
     Route: 065
  2. RITUXIMAB [Suspect]
     Active Substance: RITUXIMAB
     Indication: Product used for unknown indication
     Route: 065
  3. PREDNISONE [Suspect]
     Active Substance: PREDNISONE
     Indication: Product used for unknown indication
     Route: 065
  4. IBRUTINIB [Suspect]
     Active Substance: IBRUTINIB
     Indication: Product used for unknown indication
     Route: 065

REACTIONS (29)
  - Disease progression [Fatal]
  - Chronic graft versus host disease [Fatal]
  - Infection [Fatal]
  - Respiratory failure [Fatal]
  - Multiple organ dysfunction syndrome [Fatal]
  - Second primary malignancy [Fatal]
  - Gastrointestinal haemorrhage [Fatal]
  - Myocardial infarction [Fatal]
  - Post procedural haemorrhage [Fatal]
  - Cytopenia [Unknown]
  - Arrhythmia [Unknown]
  - Pneumonia [Unknown]
  - Myalgia [Unknown]
  - Haemorrhage [Unknown]
  - Contusion [Unknown]
  - Drug interaction [Unknown]
  - Fatigue [Unknown]
  - Headache [Unknown]
  - Oral disorder [Unknown]
  - Rash [Unknown]
  - Skin mass [Unknown]
  - Toxicity to various agents [Unknown]
  - Ejection fraction decreased [Unknown]
  - Mouth ulceration [Unknown]
  - COVID-19 [Unknown]
  - Systemic mycosis [Unknown]
  - Muscle spasms [Unknown]
  - Gastrointestinal toxicity [Unknown]
  - Hypertension [Unknown]
